FAERS Safety Report 21391609 (Version 1)
Quarter: 2022Q3

REPORT INFORMATION
  Report Type: Spontaneous
  Country: US (occurrence: US)
  Receive Date: 20220929
  Receipt Date: 20220929
  Transmission Date: 20221027
  Serious: No
  Sender: FDA-Public Use
  Company Number: US-KYOWAKIRIN-2022BKK015136

PATIENT

DRUGS (1)
  1. POTELIGEO [Suspect]
     Active Substance: MOGAMULIZUMAB-KPKC
     Indication: Cutaneous T-cell lymphoma stage I
     Dosage: UNK UNK, 1X/MONTH
     Route: 042
     Dates: end: 202209

REACTIONS (2)
  - Alopecia [Unknown]
  - Emotional distress [Unknown]

NARRATIVE: CASE EVENT DATE: 20220801
